FAERS Safety Report 7913858-6 (Version None)
Quarter: 2011Q4

REPORT INFORMATION
  Report Type: 
  Country: None (occurrence: None)
  Receive Date: 20111115
  Receipt Date: 20111104
  Transmission Date: 20120403
  Serious: Yes (Other)
  Sender: FDA-Public Use
  Company Number: US-BAYER-2011-107523

PATIENT
  Sex: Female

DRUGS (4)
  1. YAZ [Suspect]
     Dosage: UNK
     Route: 048
     Dates: start: 20071201, end: 20090201
  2. YAZ [Suspect]
     Dosage: UNK
     Route: 048
     Dates: start: 20090801, end: 20091101
  3. YASMIN [Suspect]
     Dosage: UNK
     Route: 048
     Dates: end: 20071201
  4. DROSPIRENONE AND ETHINYL ESTRADIOL [Suspect]
     Dosage: UNK
     Route: 048
     Dates: start: 20090201, end: 20090801

REACTIONS (3)
  - GALLBLADDER DISORDER [None]
  - INJURY [None]
  - PAIN [None]
